FAERS Safety Report 7119394-1 (Version None)
Quarter: 2010Q4

REPORT INFORMATION
  Report Type: 
  Country: None (occurrence: None)
  Receive Date: 20101123
  Receipt Date: 20101116
  Transmission Date: 20110411
  Serious: Yes (Death)
  Sender: FDA-Public Use
  Company Number: JP-MERCK-1011USA01301

PATIENT
  Age: 90 Year
  Sex: Female

DRUGS (7)
  1. JANUVIA [Suspect]
     Indication: TYPE 2 DIABETES MELLITUS
     Route: 048
     Dates: start: 20100220, end: 20100901
  2. MYSLEE [Concomitant]
     Route: 065
     Dates: end: 20100901
  3. CRESTOR [Concomitant]
     Route: 065
     Dates: end: 20100901
  4. ARICEPT [Concomitant]
     Route: 065
     Dates: end: 20100901
  5. AMARYL [Concomitant]
     Route: 065
     Dates: start: 20071001, end: 20100901
  6. NAUZELIN [Concomitant]
     Route: 065
     Dates: end: 20100901
  7. PEPCID [Concomitant]
     Route: 048
     Dates: end: 20100901

REACTIONS (1)
  - COMPLETED SUICIDE [None]
